FAERS Safety Report 21667228 (Version 1)
Quarter: 2022Q4

REPORT INFORMATION
  Report Type: Spontaneous
  Country: GB (occurrence: GB)
  Receive Date: 20221201
  Receipt Date: 20221201
  Transmission Date: 20230113
  Serious: Yes (Hospitalization, Other)
  Sender: FDA-Public Use
  Company Number: GB-SA-2022SA487897

PATIENT
  Age: 67 Year
  Sex: Female

DRUGS (62)
  1. DOCETAXEL [Suspect]
     Active Substance: DOCETAXEL
     Indication: Breast cancer metastatic
     Dosage: NUMBER OF CYCLES PER REGIMEN: 6
     Route: 042
     Dates: start: 20170825, end: 20170915
  2. DOCETAXEL [Suspect]
     Active Substance: DOCETAXEL
     Dosage: NUMBER OF CYCLES PER REGIMEN: 5
     Route: 042
     Dates: start: 20170915, end: 20171208
  3. EXEMESTANE [Suspect]
     Active Substance: EXEMESTANE
     Indication: Breast cancer metastatic
     Dosage: 25 MG, QD
     Route: 048
     Dates: start: 20180209
  4. PERTUZUMAB [Suspect]
     Active Substance: PERTUZUMAB
     Indication: Breast cancer metastatic
     Dosage: 840 MG, Q3W
     Route: 042
     Dates: start: 20170824, end: 20170824
  5. PERTUZUMAB [Suspect]
     Active Substance: PERTUZUMAB
     Dosage: 420 MG, Q3W
     Route: 042
     Dates: start: 20170915, end: 20210715
  6. PERTUZUMAB [Suspect]
     Active Substance: PERTUZUMAB
     Dosage: 1200 MG, Q3W
     Route: 042
     Dates: start: 20210715, end: 20210923
  7. PERTUZUMAB [Suspect]
     Active Substance: PERTUZUMAB
     Dosage: 840 MG, 1X
     Route: 042
     Dates: start: 20211111, end: 20211111
  8. PERTUZUMAB [Suspect]
     Active Substance: PERTUZUMAB
     Dosage: 420 MG, Q3W
     Route: 042
     Dates: start: 20211122, end: 20220321
  9. TRASTUZUMAB [Suspect]
     Active Substance: TRASTUZUMAB
     Indication: Breast cancer metastatic
     Dosage: 630 MG, Q3W
     Route: 041
     Dates: start: 20170825, end: 20170825
  10. TRASTUZUMAB [Suspect]
     Active Substance: TRASTUZUMAB
     Dosage: 483 MG, Q3W
     Route: 058
     Dates: start: 20170915, end: 20180209
  11. TRASTUZUMAB [Suspect]
     Active Substance: TRASTUZUMAB
     Dosage: 504 MG, Q3W
     Route: 041
     Dates: start: 20180209, end: 20210715
  12. TRASTUZUMAB [Suspect]
     Active Substance: TRASTUZUMAB
     Dosage: 1200 MG, Q3W
     Route: 058
     Dates: start: 20210715, end: 20210923
  13. TRASTUZUMAB [Suspect]
     Active Substance: TRASTUZUMAB
     Dosage: 651 MG, 1X
     Route: 041
     Dates: start: 20211111, end: 20211111
  14. TRASTUZUMAB [Suspect]
     Active Substance: TRASTUZUMAB
     Dosage: 504 MG, Q3W
     Route: 041
     Dates: start: 20211122, end: 20220321
  15. HYALURONIDASE [Suspect]
     Active Substance: HYALURONIDASE
     Indication: Breast cancer metastatic
     Dosage: 1200 MG, Q3W
     Dates: start: 20210715, end: 20210923
  16. CALCIUM CARBONATE\CHOLECALCIFEROL [Concomitant]
     Active Substance: CALCIUM CARBONATE\CHOLECALCIFEROL
     Dosage: 1 DF, QD
     Route: 048
     Dates: start: 20170825
  17. ALENDRONIC ACID [Concomitant]
     Active Substance: ALENDRONIC ACID
     Dosage: 70 MG, QW
     Route: 048
  18. AMLODIPINE [Concomitant]
     Active Substance: AMLODIPINE BESYLATE
     Indication: Hypertension
     Dosage: 5 MG, QD
     Route: 048
  19. AMOXICILLIN [Concomitant]
     Active Substance: AMOXICILLIN
     Dosage: 500 MG, QD
     Route: 048
     Dates: start: 20191104, end: 20191112
  20. AMOXICILLIN [Concomitant]
     Active Substance: AMOXICILLIN
     Dosage: 500 MG, QD
     Route: 048
     Dates: start: 20210205, end: 20210212
  21. AMOXICILLIN [Concomitant]
     Active Substance: AMOXICILLIN
     Dosage: 625 MG, QD
     Route: 048
     Dates: start: 20210315, end: 20210322
  22. AMOXICILLIN [Concomitant]
     Active Substance: AMOXICILLIN
     Dosage: 500 MG, QD
     Route: 048
     Dates: start: 20220330, end: 20220409
  23. APIXABAN [Concomitant]
     Active Substance: APIXABAN
     Dosage: 10 MG, QD
     Route: 048
     Dates: start: 20220614
  24. MYROXYLON BALSAMUM [Concomitant]
     Indication: Haemorrhoids
     Dosage: 1 DF, PRN
     Route: 061
  25. CIPROFLOXACIN [Concomitant]
     Active Substance: CIPROFLOXACIN
     Dosage: 500 MG, QD
     Route: 048
     Dates: start: 20220622
  26. CLARITHROMYCIN [Concomitant]
     Active Substance: CLARITHROMYCIN
     Dosage: 500 MG, QD
     Route: 048
     Dates: start: 20200121, end: 20200128
  27. CLARITHROMYCIN [Concomitant]
     Active Substance: CLARITHROMYCIN
     Dosage: 500 MG, QD
     Route: 048
     Dates: start: 20200203, end: 20200210
  28. CLARITHROMYCIN [Concomitant]
     Active Substance: CLARITHROMYCIN
     Dosage: 250 MG, QD
     Route: 048
     Dates: start: 20220419, end: 20220426
  29. CLOPIDOGREL [Concomitant]
     Active Substance: CLOPIDOGREL BISULFATE
     Dosage: 75 MG, QD
     Route: 048
     Dates: start: 20220612, end: 20220628
  30. AMOXICILLIN\CLAVULANATE POTASSIUM [Concomitant]
     Active Substance: AMOXICILLIN\CLAVULANATE POTASSIUM
     Dosage: 1.2 G, QD
     Route: 042
     Dates: start: 20190117, end: 20190121
  31. AMOXICILLIN\CLAVULANATE POTASSIUM [Concomitant]
     Active Substance: AMOXICILLIN\CLAVULANATE POTASSIUM
     Dosage: 625 MG, QD
     Route: 048
     Dates: start: 20190122, end: 20190127
  32. AMOXICILLIN\CLAVULANATE POTASSIUM [Concomitant]
     Active Substance: AMOXICILLIN\CLAVULANATE POTASSIUM
     Dosage: 625 MG, QD
     Route: 048
     Dates: start: 20200121, end: 20200128
  33. AMOXICILLIN\CLAVULANATE POTASSIUM [Concomitant]
     Active Substance: AMOXICILLIN\CLAVULANATE POTASSIUM
     Dosage: 625 MG, QD
     Route: 048
     Dates: start: 20200203, end: 20200210
  34. CYCLIZINE [Concomitant]
     Active Substance: CYCLIZINE
     Indication: Nausea
     Dosage: 50 MG, PRN
     Route: 048
     Dates: start: 20190718
  35. DENOSUMAB [Concomitant]
     Active Substance: DENOSUMAB
     Dosage: 120 MG, QM
     Route: 058
     Dates: start: 20180706
  36. DOXYCYCLINE [Concomitant]
     Active Substance: DOXYCYCLINE
     Dosage: 200 MG, QD
     Route: 048
     Dates: start: 20191104, end: 20191111
  37. LANOLIN\LIGHT MINERAL OIL\PARAFFIN [Concomitant]
     Active Substance: LANOLIN\LIGHT MINERAL OIL\PARAFFIN
     Indication: Rash pruritic
     Dosage: 1 DF, PRN
     Route: 061
     Dates: start: 20180810
  38. FERROUS SULFATE [Concomitant]
     Active Substance: FERROUS SULFATE
     Indication: Anaemia
     Dosage: 200 MG, QD
     Route: 048
  39. FRUSEMIDE ALMUS [Concomitant]
     Dosage: 40 MG, QD
     Route: 048
     Dates: start: 20220612
  40. IBUPROFEN [Concomitant]
     Active Substance: IBUPROFEN
     Indication: Pain
     Dosage: 400 MG, PRN
     Route: 048
     Dates: start: 20190718
  41. LANSOPRAZOLE [Concomitant]
     Active Substance: LANSOPRAZOLE
     Dosage: 30 MG, PRN
     Route: 048
  42. LOPERAMIDE [Concomitant]
     Active Substance: LOPERAMIDE
     Dosage: 2 MG, PRN
     Route: 048
     Dates: start: 20210913
  43. LOSARTAN [Concomitant]
     Active Substance: LOSARTAN
     Indication: Hypertension
     Dosage: 50 MG, QD
     Route: 048
  44. MENTHOL [Concomitant]
     Active Substance: MENTHOL
     Indication: Rash pruritic
     Dosage: 1 DF, PRN
     Route: 061
     Dates: start: 20180810
  45. NITROFURANTOIN [Concomitant]
     Active Substance: NITROFURANTOIN
     Dosage: 50 MG, QD
     Route: 048
     Dates: start: 20210107, end: 20210112
  46. ACETAMINOPHEN [Concomitant]
     Active Substance: ACETAMINOPHEN
     Dosage: 1 G, PRN
     Route: 048
     Dates: start: 20190117
  47. CHLORPHENIRAMINE MALEATE [Concomitant]
     Active Substance: CHLORPHENIRAMINE MALEATE
     Indication: Rash
     Dosage: 4 MG, PRN
     Route: 048
     Dates: start: 20180504
  48. RAMIPRIL [Concomitant]
     Active Substance: RAMIPRIL
     Indication: Hypertension
     Dosage: 2.5 MG, QD
     Route: 048
     Dates: start: 20180504
  49. ALBUTEROL [Concomitant]
     Active Substance: ALBUTEROL
     Dosage: 1 DF, PRN
     Route: 048
  50. SODIUM CHLORIDE [Concomitant]
     Active Substance: SODIUM CHLORIDE
     Dosage: 1000 ML
     Route: 042
     Dates: start: 20190118, end: 20190118
  51. SERTRALINE [Concomitant]
     Active Substance: SERTRALINE HYDROCHLORIDE
     Indication: Depression
     Dosage: 100 MG, QD
     Route: 048
  52. PIPERACILLIN SODIUM\TAZOBACTAM SODIUM [Concomitant]
     Active Substance: PIPERACILLIN SODIUM\TAZOBACTAM SODIUM
     Dosage: 4.5 MG
     Route: 042
     Dates: start: 20200201, end: 20200201
  53. PIPERACILLIN SODIUM\TAZOBACTAM SODIUM [Concomitant]
     Active Substance: PIPERACILLIN SODIUM\TAZOBACTAM SODIUM
     Dosage: 4.5 MG, QD
     Route: 042
     Dates: start: 20210308, end: 20210312
  54. PIPERACILLIN SODIUM\TAZOBACTAM SODIUM [Concomitant]
     Active Substance: PIPERACILLIN SODIUM\TAZOBACTAM SODIUM
     Dosage: 4.5 MG, QD
     Route: 042
     Dates: start: 20220611, end: 20220622
  55. TINZAPARIN [Concomitant]
     Active Substance: TINZAPARIN
     Dosage: 4500 IU, QD
     Route: 058
     Dates: start: 20190117
  56. TINZAPARIN [Concomitant]
     Active Substance: TINZAPARIN
     Dosage: 1 DF, QD
     Route: 058
     Dates: start: 20220612, end: 20220613
  57. ZOLEDRONIC ACID [Concomitant]
     Active Substance: ZOLEDRONIC ACID
     Dosage: 4 MG, Q3W
     Route: 042
     Dates: start: 20170915, end: 20180209
  58. ZOLEDRONIC ACID [Concomitant]
     Active Substance: ZOLEDRONIC ACID
     Dosage: 3.5 MG, Q3W
     Route: 042
     Dates: start: 20180302, end: 20180525
  59. ZOLEDRONIC ACID [Concomitant]
     Active Substance: ZOLEDRONIC ACID
     Dosage: 3.3 MG, Q3W
     Route: 042
     Dates: start: 20180525, end: 20180706
  60. ELTROMBOPAG [Concomitant]
     Active Substance: ELTROMBOPAG
     Dosage: 50 MG, QD
     Route: 048
     Dates: start: 20220331
  61. PREDNISOLONE [Concomitant]
     Active Substance: PREDNISOLONE
     Dosage: 30 MG, QD
     Route: 048
     Dates: start: 20220401
  62. PREDNISOLONE [Concomitant]
     Active Substance: PREDNISOLONE
     Dosage: 15 MG, QD
     Route: 048
     Dates: start: 20220414

REACTIONS (3)
  - Rectal haemorrhage [Recovered/Resolved]
  - Platelet count decreased [Not Recovered/Not Resolved]
  - Rectal cancer [Not Recovered/Not Resolved]

NARRATIVE: CASE EVENT DATE: 20211117
